FAERS Safety Report 15247268 (Version 1)
Quarter: 2018Q4

REPORT INFORMATION
  Report Type: Spontaneous
  Country: IN (occurrence: IN)
  Receive Date: 20180807
  Receipt Date: 20180807
  Transmission Date: 20190204
  Serious: No
  Sender: FDA-Public Use
  Company Number: IN-LUPIN LIMITED-2018-00818

PATIENT

DRUGS (2)
  1. EPILIVE FILM C.TABS 500 MG [Suspect]
     Active Substance: LEVETIRACETAM
     Indication: SEIZURE
     Dosage: 1 DF, BID
     Route: 048
     Dates: start: 20180204
  2. CLOBAZAM. [Suspect]
     Active Substance: CLOBAZAM
     Indication: SEIZURE
     Dosage: 1 DF, QD
     Route: 048
     Dates: start: 20180204

REACTIONS (1)
  - Dizziness [Not Recovered/Not Resolved]
